FAERS Safety Report 17642186 (Version 1)
Quarter: 2020Q2

REPORT INFORMATION
  Report Type: Spontaneous
  Country: NL (occurrence: NL)
  Receive Date: 20200408
  Receipt Date: 20200408
  Transmission Date: 20200713
  Serious: Yes (Other)
  Sender: FDA-Public Use
  Company Number: NL-SA-2020SA085961

PATIENT
  Sex: Male
  Weight: 80 kg

DRUGS (4)
  1. CLINDAMYCIN. [Concomitant]
     Active Substance: CLINDAMYCIN
     Dosage: SOLUTION, 10 MG / ML (MILLIGRAMS PER MILLILITER)
  2. RIFAMPICIN [Suspect]
     Active Substance: RIFAMPIN
     Dosage: 2DD 450MG IV
     Route: 042
  3. RIFAMPICIN [Suspect]
     Active Substance: RIFAMPIN
     Indication: LOCALISED INFECTION
     Dosage: 150 MG, ORAL 2DD
     Route: 048
     Dates: start: 2020
  4. PANTOPRAZOL [PANTOPRAZOLE] [Concomitant]
     Active Substance: PANTOPRAZOLE
     Dosage: POWDER INJECTION LIQUID, 40 MG (MILLIGRAM)

REACTIONS (1)
  - Pancytopenia [Recovered/Resolved]
